FAERS Safety Report 7706661-3 (Version None)
Quarter: 2011Q3

REPORT INFORMATION
  Report Type: 
  Country: None (occurrence: None)
  Receive Date: 20110824
  Receipt Date: 20110819
  Transmission Date: 20111222
  Serious: Yes (Other)
  Sender: FDA-Public Use
  Company Number: US-PFIZER INC-2011126661

PATIENT
  Sex: Female
  Weight: 77.098 kg

DRUGS (4)
  1. DIAZEPAM [Concomitant]
     Indication: PANIC ATTACK
  2. DIAZEPAM [Concomitant]
     Indication: ANXIETY
     Dosage: UNK
  3. LYRICA [Suspect]
     Indication: FIBROMYALGIA
     Dosage: 150 MG, 2X/DAY
     Route: 048
     Dates: start: 20110201, end: 20110812
  4. PERCOCET [Concomitant]
     Indication: ARTHRITIS
     Dosage: UNK

REACTIONS (5)
  - DISORIENTATION [None]
  - WITHDRAWAL SYNDROME [None]
  - DIZZINESS [None]
  - IMPAIRED DRIVING ABILITY [None]
  - CHOKING [None]
